FAERS Safety Report 7623170-0 (Version None)
Quarter: 2011Q3

REPORT INFORMATION
  Report Type: 
  Country: None (occurrence: None)
  Receive Date: 20110720
  Receipt Date: 20110711
  Transmission Date: 20111222
  Serious: Yes (Hospitalization, Other)
  Sender: FDA-Public Use
  Company Number: PHHY2011DE63238

PATIENT
  Age: 83 Year
  Sex: Male

DRUGS (16)
  1. TRIARESE [Concomitant]
     Dosage: REDUCED DOSE
  2. EXELON [Suspect]
     Indication: DEMENTIA
     Dosage: 4.6 MG/24 HRS (1 DF QD)
     Route: 062
     Dates: start: 20110607
  3. METFORMIN HCL [Concomitant]
     Dosage: UNK UKN, UNK
  4. EXELON [Suspect]
     Indication: DEMENTIA
     Dosage: UNK UKN, UNK
     Route: 048
     Dates: start: 20110601, end: 20110606
  5. STALEVO 100 [Concomitant]
     Dosage: UNK UKN, UNK
  6. LEVODOPA [Concomitant]
     Dosage: UNK UKN, UNK
  7. MELNEURIN [Concomitant]
     Dosage: UNK UKN, UNK
  8. TILIDIN [Concomitant]
     Dosage: UNK UKN, UNK
  9. ZOMETA [Concomitant]
     Dosage: UNK UKN, UNK
     Route: 042
  10. ANALGESICS [Concomitant]
     Indication: FALL
     Dosage: UNK UKN, UNK
  11. TAMSULOSIN HCL [Concomitant]
     Dosage: UNK UKN, UNK
  12. NOVALGIN [Concomitant]
     Dosage: UNK UKN, UNK
  13. RAMIPRIL [Concomitant]
     Dosage: UNK UKN, UNK
     Dates: end: 20110601
  14. EXELON [Suspect]
     Dosage: 9.5 MG/24 HRS (1 DF QD)
     Route: 062
  15. EXELON [Suspect]
     Dosage: 4.6 MG/24 HRS (1 DF QD)
     Route: 062
  16. TRIARESE [Concomitant]
     Dosage: UNK UKN, UNK
     Dates: start: 20110601

REACTIONS (6)
  - SPINAL FRACTURE [None]
  - VOMITING [None]
  - BLOOD PRESSURE SYSTOLIC DECREASED [None]
  - FALL [None]
  - NAUSEA [None]
  - DECREASED APPETITE [None]
